FAERS Safety Report 5796600-7 (Version None)
Quarter: 2008Q2

REPORT INFORMATION
  Report Type: 
  Country: None (occurrence: None)
  Receive Date: 20080630
  Receipt Date: 20080630
  Transmission Date: 20081010
  Serious: No
  Sender: FDA-Public Use
  Company Number: None

PATIENT
  Age: 45 Year
  Sex: Male
  Weight: 105 kg

DRUGS (4)
  1. FENTANYL CITRATE [Suspect]
     Indication: OESOPHAGOGASTRODUODENOSCOPY
     Dosage: 150 MCG ONCE IV
     Route: 042
     Dates: start: 20080604, end: 20080604
  2. FENTANYL CITRATE [Suspect]
     Indication: SURGERY
     Dosage: 150 MCG ONCE IV
     Route: 042
     Dates: start: 20080604, end: 20080604
  3. MIDAZOLAM HCL [Suspect]
     Indication: OESOPHAGOGASTRODUODENOSCOPY
     Dosage: 3 MG ONCE IV
     Route: 042
     Dates: start: 20080604, end: 20080604
  4. MIDAZOLAM HCL [Suspect]
     Indication: SURGERY
     Dosage: 3 MG ONCE IV
     Route: 042
     Dates: start: 20080604, end: 20080604

REACTIONS (1)
  - APNOEA [None]
